FAERS Safety Report 20391438 (Version 1)
Quarter: 2022Q1

REPORT INFORMATION
  Report Type: Spontaneous
  Country: JP (occurrence: JP)
  Receive Date: 20220128
  Receipt Date: 20220128
  Transmission Date: 20220423
  Serious: Yes (Death, Other)
  Sender: FDA-Public Use
  Company Number: JP-CELGENE-JPN-20220106837

PATIENT
  Age: 73 Year
  Sex: Female

DRUGS (10)
  1. POMALYST [Suspect]
     Active Substance: POMALIDOMIDE
     Indication: Plasma cell myeloma
     Dosage: UNKNOWN
     Route: 048
  2. POMALYST [Suspect]
     Active Substance: POMALIDOMIDE
     Route: 048
  3. POMALYST [Suspect]
     Active Substance: POMALIDOMIDE
     Route: 048
  4. DEXAMETHASONE [Suspect]
     Active Substance: DEXAMETHASONE
     Indication: Plasma cell myeloma
     Dosage: UNKNOWN
     Route: 048
  5. DEXAMETHASONE [Suspect]
     Active Substance: DEXAMETHASONE
     Dosage: UNKNOWN
     Route: 048
  6. DEXAMETHASONE [Suspect]
     Active Substance: DEXAMETHASONE
     Dosage: UNKNOWN
     Route: 048
  7. DEXAMETHASONE [Suspect]
     Active Substance: DEXAMETHASONE
     Dosage: UNKNOWN
     Route: 048
  8. DEXAMETHASONE [Suspect]
     Active Substance: DEXAMETHASONE
     Dosage: UNKNOWN
     Route: 048
  9. ISATUXIMAB [Concomitant]
     Active Substance: ISATUXIMAB
     Indication: Plasma cell myeloma
     Dosage: UNKNOWN
     Route: 065
  10. GRANULOCYTE COLONY-STIMULATING FACTOR NOS [Concomitant]
     Active Substance: GRANULOCYTE COLONY-STIMULATING FACTOR NOS
     Indication: Product used for unknown indication
     Dosage: UNKNOWN
     Route: 065

REACTIONS (5)
  - Death [Fatal]
  - Atrial fibrillation [Unknown]
  - White blood cell count decreased [Unknown]
  - Neutrophil count decreased [Unknown]
  - Plasma cell myeloma [Unknown]
